FAERS Safety Report 4817760-8 (Version None)
Quarter: 2005Q3

REPORT INFORMATION
  Report Type: 
  Country: None (occurrence: None)
  Receive Date: 20050929
  Receipt Date: 20050810
  Transmission Date: 20060218
  Serious: No
  Sender: FDA-Public Use
  Company Number: 05P-163-0307978-00

PATIENT
  Age: 29 Year
  Sex: Female
  Weight: 52.1637 kg

DRUGS (4)
  1. HUMIRA [Suspect]
     Indication: RHEUMATOID ARTHRITIS
     Dosage: 40 MG, 1 IN 2 WK, SUBCUTANEOUS
     Route: 058
     Dates: start: 20030321
  2. METHOTREXATE [Concomitant]
  3. FOLIC ACID [Concomitant]
  4. DESOGESTREL AND ETHINYL ESTRADIOL [Concomitant]

REACTIONS (1)
  - ACCIDENTAL NEEDLE STICK [None]
